FAERS Safety Report 25381447 (Version 1)
Quarter: 2025Q2

REPORT INFORMATION
  Report Type: Spontaneous
  Country: ES (occurrence: ES)
  Receive Date: 20250530
  Receipt Date: 20250530
  Transmission Date: 20250716
  Serious: Yes (Other)
  Sender: TAIHO ONCOLOGY INC
  Company Number: ES-MMM-Otsuka-C9S2HBFX

PATIENT
  Age: 80 Year
  Sex: Female

DRUGS (2)
  1. INQOVI [Suspect]
     Active Substance: CEDAZURIDINE\DECITABINE
     Indication: Acute myeloid leukaemia
     Dosage: (35MG/100MG), QD (FOR 5 CONSECUTIVE DAYS)
     Route: 048
     Dates: start: 20250125
  2. INQOVI [Suspect]
     Active Substance: CEDAZURIDINE\DECITABINE
     Indication: Myelodysplastic syndrome
     Route: 048

REACTIONS (8)
  - Cerebellar haemorrhage [Recovered/Resolved]
  - Thrombocytopenia [Recovered/Resolved]
  - Thrombocytopenia [Unknown]
  - Arthralgia [Recovered/Resolved]
  - Drug intolerance [Unknown]
  - Constipation [Unknown]
  - Asthenia [Unknown]
  - Vomiting [Recovered/Resolved]
